FAERS Safety Report 15450311 (Version 1)
Quarter: 2018Q4

REPORT INFORMATION
  Report Type: Spontaneous
  Country: US (occurrence: US)
  Receive Date: 20181001
  Receipt Date: 20181001
  Transmission Date: 20190204
  Serious: No
  Sender: FDA-Public Use
  Company Number: US-PFIZER INC-2017553183

PATIENT
  Age: 23 Year
  Sex: Female

DRUGS (2)
  1. GENOTROPIN [Suspect]
     Active Substance: SOMATROPIN
     Dosage: 1.6 MG, DAILY
  2. GENOTROPIN [Suspect]
     Active Substance: SOMATROPIN
     Indication: SEPTO-OPTIC DYSPLASIA
     Dosage: 1.4 MG, DAILY
     Route: 058

REACTIONS (5)
  - Product use in unapproved indication [Unknown]
  - Anxiety [Unknown]
  - Insulin-like growth factor decreased [Unknown]
  - Headache [Unknown]
  - Panic reaction [Unknown]
